FAERS Safety Report 24606272 (Version 1)
Quarter: 2024Q4

REPORT INFORMATION
  Report Type: Spontaneous
  Country: CN (occurrence: CN)
  Receive Date: 20241112
  Receipt Date: 20241112
  Transmission Date: 20250115
  Serious: Yes (Other)
  Sender: ASTELLAS
  Company Number: CN-ASTELLAS-2024-AER-017478

PATIENT
  Age: 61 Year
  Sex: Male
  Weight: 55 kg

DRUGS (1)
  1. ISAVUCONAZONIUM SULFATE [Suspect]
     Active Substance: ISAVUCONAZONIUM SULFATE
     Indication: Pneumonia
     Dosage: 200 MILLIGRAM, TID; IV DRIP
     Route: 050
     Dates: start: 20241021, end: 20241024

REACTIONS (3)
  - Chest discomfort [Recovered/Resolved]
  - Suffocation feeling [Recovered/Resolved]
  - Intentional product use issue [Unknown]

NARRATIVE: CASE EVENT DATE: 20241021
